FAERS Safety Report 15170871 (Version 1)
Quarter: 2018Q3

REPORT INFORMATION
  Report Type: Spontaneous
  Country: US (occurrence: US)
  Receive Date: 20180622
  Receipt Date: 20180622
  Transmission Date: 20181010
  Serious: No
  Sender: FDA-Public Use
  Company Number: None

PATIENT
  Age: 35 Year
  Sex: Female

DRUGS (1)
  1. AVONEX [Suspect]
     Active Substance: INTERFERON BETA-1A
     Indication: MULTIPLE SCLEROSIS
     Route: 030
     Dates: start: 20160615

REACTIONS (7)
  - Drug ineffective [None]
  - Mood altered [None]
  - Clostridium difficile infection [None]
  - Autoimmune disorder [None]
  - Arthralgia [None]
  - Muscle spasms [None]
  - Depression [None]

NARRATIVE: CASE EVENT DATE: 20180101
